FAERS Safety Report 21253646 (Version 1)
Quarter: 2022Q3

REPORT INFORMATION
  Report Type: Spontaneous
  Country: US (occurrence: None)
  Receive Date: 20220824
  Receipt Date: 20220824
  Transmission Date: 20221026
  Serious: Yes (unspecified)
  Sender: FDA-Public Use
  Company Number: None

PATIENT
  Age: 77 Year
  Sex: Male
  Weight: 80 kg

DRUGS (1)
  1. AVELUMAB [Suspect]
     Active Substance: AVELUMAB
     Indication: Bladder transitional cell carcinoma stage IV
     Dosage: 800 MG OTHER IV
     Route: 042
     Dates: start: 20220728, end: 20220728

REACTIONS (3)
  - Hypertension [None]
  - Chills [None]
  - Tachycardia [None]

NARRATIVE: CASE EVENT DATE: 20220728
